FAERS Safety Report 19033174 (Version 1)
Quarter: 2021Q1

REPORT INFORMATION
  Report Type: Spontaneous
  Country: CN (occurrence: CN)
  Receive Date: 20210320
  Receipt Date: 20210320
  Transmission Date: 20210420
  Serious: Yes (Other)
  Sender: FDA-Public Use
  Company Number: CN-ROCHE-2793486

PATIENT
  Age: 55 Year
  Sex: Female

DRUGS (9)
  1. PERJETA [Suspect]
     Active Substance: PERTUZUMAB
     Dosage: SEQUENTIAL,DAY1
     Route: 065
  2. HERCEPTIN [Suspect]
     Active Substance: TRASTUZUMAB
     Indication: INVASIVE DUCTAL BREAST CARCINOMA
     Dosage: FIRST DOSE,DAY1
     Route: 065
  3. PACLITAXEL. [Concomitant]
     Active Substance: PACLITAXEL
     Dosage: SEQUENTIAL,DAY2
  4. PACLITAXEL. [Concomitant]
     Active Substance: PACLITAXEL
     Indication: INVASIVE DUCTAL BREAST CARCINOMA
     Dosage: FIRST DOSE,DAY2
  5. HERCEPTIN [Suspect]
     Active Substance: TRASTUZUMAB
     Dosage: SEQUENTIAL,DAY1
     Route: 065
  6. PERJETA [Suspect]
     Active Substance: PERTUZUMAB
     Indication: INVASIVE DUCTAL BREAST CARCINOMA
     Dosage: FIRST DOSE,DAY1
     Route: 065
  7. PERJETA [Suspect]
     Active Substance: PERTUZUMAB
     Dosage: FROM 22 APR 2010 TO 12 SEP 2014
     Route: 065
  8. HERCEPTIN [Suspect]
     Active Substance: TRASTUZUMAB
     Dosage: FROM 22 APR 2010 TO 12 SEP 2014
     Route: 065
  9. DOCETAXEL. [Concomitant]
     Active Substance: DOCETAXEL
     Indication: INVASIVE DUCTAL BREAST CARCINOMA

REACTIONS (1)
  - Agranulocytosis [Unknown]
